FAERS Safety Report 5173220-9 (Version None)
Quarter: 2006Q4

REPORT INFORMATION
  Report Type: 
  Country: None (occurrence: None)
  Receive Date: 20061214
  Receipt Date: 20061208
  Transmission Date: 20070319
  Serious: Yes (Other)
  Sender: FDA-Public Use
  Company Number: 2006PK02569

PATIENT
  Age: 47 Year
  Sex: Male
  Weight: 83 kg

DRUGS (1)
  1. NEXIUM [Suspect]
     Indication: BARRETT'S OESOPHAGUS
     Route: 048
     Dates: start: 20050728

REACTIONS (1)
  - VISUAL ACUITY REDUCED [None]
